FAERS Safety Report 18507001 (Version 2)
Quarter: 2020Q4

REPORT INFORMATION
  Report Type: Spontaneous
  Country: US (occurrence: US)
  Receive Date: 20201116
  Receipt Date: 20201119
  Transmission Date: 20210114
  Serious: Yes (Other)
  Sender: FDA-Public Use
  Company Number: US-PFIZER INC-2020447147

PATIENT
  Sex: Female

DRUGS (2)
  1. GABAPENTIN. [Suspect]
     Active Substance: GABAPENTIN
     Dosage: UNK (TAKING BETWEEN 600MG-3600MG)
  2. BACLOFEN. [Concomitant]
     Active Substance: BACLOFEN
     Dosage: UNK
     Route: 048

REACTIONS (5)
  - Walking aid user [Unknown]
  - Suicidal ideation [Unknown]
  - Incontinence [Unknown]
  - Quality of life decreased [Unknown]
  - Peripheral swelling [Unknown]
